FAERS Safety Report 24883042 (Version 2)
Quarter: 2025Q4

REPORT INFORMATION
  Report Type: Report from Study
  Country: CO (occurrence: None)
  Receive Date: 20250124
  Receipt Date: 20251020
  Transmission Date: 20260117
  Serious: Yes (Other)
  Sender: UCB
  Company Number: CO-UCBSA-2025003974

PATIENT
  Age: 58 Year

DRUGS (9)
  1. CIMZIA [Suspect]
     Active Substance: CERTOLIZUMAB PEGOL
     Indication: Psoriatic arthropathy
     Dosage: 400 MILLIGRAM, EV 15 DAYS
  2. CIMZIA [Suspect]
     Active Substance: CERTOLIZUMAB PEGOL
     Indication: Rheumatoid arthritis
     Dosage: 400 MILLIGRAM, EV 30 DAYS
  3. ETORICOXIB [Concomitant]
     Active Substance: ETORICOXIB
     Indication: Product used for unknown indication
     Dosage: UNK
  4. LEFLUNOMIDE [Concomitant]
     Active Substance: LEFLUNOMIDE
     Indication: Product used for unknown indication
     Dosage: UNK
  5. DOLEX FORTE [Concomitant]
     Active Substance: ACETAMINOPHEN\ASPIRIN\CAFFEINE
     Indication: Product used for unknown indication
     Dosage: UNK
  6. HYDROCORTISONE [Concomitant]
     Active Substance: HYDROCORTISONE
     Indication: Product used for unknown indication
     Dosage: UNK
  7. THIAMINE [Concomitant]
     Active Substance: THIAMINE
     Indication: Product used for unknown indication
     Dosage: UNK
  8. NAPROXEN [Concomitant]
     Active Substance: NAPROXEN
     Indication: Product used for unknown indication
     Dosage: UNK
  9. CETUXIMAB [Concomitant]
     Active Substance: CETUXIMAB
     Indication: Product used for unknown indication
     Dosage: 80 MILLIGRAM, EV 15 DAYS

REACTIONS (4)
  - Blood pressure increased [Recovered/Resolved]
  - Headache [Not Recovered/Not Resolved]
  - Chills [Recovered/Resolved]
  - Drug ineffective [Unknown]
